FAERS Safety Report 6520909-2 (Version None)
Quarter: 2009Q4

REPORT INFORMATION
  Report Type: 
  Country: None (occurrence: None)
  Receive Date: 20091229
  Receipt Date: 20091217
  Transmission Date: 20100525
  Serious: Yes (Other)
  Sender: FDA-Public Use
  Company Number: GB-PFIZER INC-2009311928

PATIENT
  Sex: Female

DRUGS (2)
  1. PHENYTOIN SODIUM CAP [Suspect]
     Dosage: 50 MG, UNK
  2. PHENYTOIN SODIUM CAP [Suspect]
     Dosage: 50 MG, UNK

REACTIONS (1)
  - PALPITATIONS [None]
